FAERS Safety Report 6894045-X (Version None)
Quarter: 2010Q3

REPORT INFORMATION
  Report Type: 
  Country: None (occurrence: None)
  Receive Date: 20100802
  Receipt Date: 20100720
  Transmission Date: 20110219
  Serious: Yes (Death)
  Sender: FDA-Public Use
  Company Number: IT-JNJFOC-20100709149

PATIENT
  Sex: Male

DRUGS (12)
  1. LEVOFLOXACIN [Suspect]
     Indication: PRODUCT USED FOR UNKNOWN INDICATION
     Route: 048
  2. LEVOFLOXACIN [Suspect]
     Route: 048
  3. METFORMIN [Concomitant]
     Route: 065
  4. PREDNISONE [Concomitant]
     Route: 065
  5. TALOFEN [Concomitant]
     Route: 065
  6. TRAZODONE [Concomitant]
     Route: 065
  7. NADROPARIN CALCIUM [Concomitant]
     Route: 065
  8. PURSENNID [Concomitant]
     Route: 065
  9. DOMPERIDONE [Concomitant]
     Route: 065
  10. OMEPRAZOLE [Concomitant]
     Route: 065
  11. BECLOMETHASONE DIPROPIONATE [Concomitant]
     Route: 065
  12. OXITROPIUM [Concomitant]
     Route: 065

REACTIONS (3)
  - AZOTAEMIA [None]
  - DEATH [None]
  - HEPATITIS ACUTE [None]
